FAERS Safety Report 8156810-0 (Version None)
Quarter: 2012Q1

REPORT INFORMATION
  Report Type: 
  Country: None (occurrence: None)
  Receive Date: 20120222
  Receipt Date: 20120216
  Transmission Date: 20120608
  Serious: Yes (Hospitalization)
  Sender: FDA-Public Use
  Company Number: US-GLAXOSMITHKLINE-A0886388A

PATIENT
  Age: 61 Year
  Sex: Female

DRUGS (12)
  1. LANTUS [Concomitant]
  2. NAPROXEN [Concomitant]
  3. AVANDIA [Suspect]
     Indication: DIABETES MELLITUS
     Dosage: 4MG PER DAY
     Route: 048
     Dates: start: 20061113, end: 20100322
  4. ZYLOPRIM [Concomitant]
  5. PRAZOSIN HYDROCHLORIDE [Concomitant]
  6. ZANTAC [Concomitant]
  7. NORTRIPTYLINE HCL [Concomitant]
  8. FLUTICASONE PROPIONATE [Concomitant]
  9. METFORMIN HCL [Concomitant]
  10. LISINOPRIL [Concomitant]
  11. THEOPHYLLINE [Concomitant]
  12. CLONIDINE [Concomitant]

REACTIONS (3)
  - CEREBROVASCULAR ACCIDENT [None]
  - CARDIAC DISORDER [None]
  - TRANSIENT ISCHAEMIC ATTACK [None]
